FAERS Safety Report 7901000-7 (Version None)
Quarter: 2011Q4

REPORT INFORMATION
  Report Type: 
  Country: None (occurrence: None)
  Receive Date: 20111108
  Receipt Date: 20111103
  Transmission Date: 20120403
  Serious: Yes (Death, Hospitalization)
  Sender: FDA-Public Use
  Company Number: SE-PFIZER INC-2011267861

PATIENT
  Age: 90 Year
  Sex: Male

DRUGS (1)
  1. LYRICA [Suspect]
     Indication: SLEEP DISORDER
     Dosage: UNK
     Dates: start: 20110801

REACTIONS (5)
  - MOBILITY DECREASED [None]
  - VISUAL ACUITY REDUCED [None]
  - APHAGIA [None]
  - DEATH [None]
  - DYSURIA [None]
